FAERS Safety Report 10192372 (Version 4)
Quarter: 2015Q1

REPORT INFORMATION
  Report Type: Spontaneous
  Country: JP (occurrence: JP)
  Receive Date: 20140523
  Receipt Date: 20150227
  Transmission Date: 20150720
  Serious: Yes (Hospitalization)
  Sender: FDA-Public Use
  Company Number: JP-DSJP-DSJ-2014-04178

PATIENT

DRUGS (13)
  1. OLMETEC [Suspect]
     Active Substance: OLMESARTAN MEDOXOMIL
     Indication: HYPERTENSION
     Route: 048
     Dates: end: 20121217
  2. CELSENTRI [Suspect]
     Active Substance: MARAVIROC
     Dosage: EVERY
     Route: 048
     Dates: start: 20130805, end: 20130908
  3. TAMBOCOR [Concomitant]
     Active Substance: FLECAINIDE ACETATE
     Indication: ATRIAL FIBRILLATION
     Route: 065
     Dates: end: 20130107
  4. ISENTRESS [Suspect]
     Active Substance: RALTEGRAVIR POTASSIUM
     Indication: HIV INFECTION
     Dosage: EVERY
     Route: 048
     Dates: start: 20110615
  5. CELSENTRI [Suspect]
     Active Substance: MARAVIROC
     Indication: HIV INFECTION
     Dosage: EVERY
     Route: 048
     Dates: start: 20110615, end: 20130804
  6. CELSENTRI [Suspect]
     Active Substance: MARAVIROC
     Dosage: EVERY
     Route: 048
     Dates: start: 20131007
  7. ALOSITOL [Concomitant]
     Active Substance: ALLOPURINOL
     Indication: HYPERURICAEMIA
     Route: 048
  8. BAYASPIRIN [Concomitant]
     Active Substance: ASPIRIN
     Indication: CEREBRAL INFARCTION
     Route: 048
  9. INTELENCE [Suspect]
     Active Substance: ETRAVIRINE
     Indication: HIV INFECTION
     Dosage: EVERY
     Route: 048
     Dates: start: 20110615
  10. LASIX [Concomitant]
     Active Substance: FUROSEMIDE
     Indication: HYPERKALAEMIA
     Route: 065
  11. CELSENTRI [Suspect]
     Active Substance: MARAVIROC
     Dosage: EVERY
     Route: 048
     Dates: start: 20130930, end: 20131006
  12. AMLODIN [Concomitant]
     Active Substance: AMLODIPINE BESYLATE
     Indication: HYPERTENSION
     Route: 048
  13. CELSENTRI [Suspect]
     Active Substance: MARAVIROC
     Dosage: EVERY
     Route: 048
     Dates: start: 20130909, end: 20130929

REACTIONS (5)
  - Vitreous haemorrhage [Recovered/Resolved]
  - Vitrectomy [Unknown]
  - Hyperkalaemia [Recovered/Resolved]
  - Lenticular operation [Unknown]
  - Glaucoma [Recovering/Resolving]

NARRATIVE: CASE EVENT DATE: 20121029
